FAERS Safety Report 11275613 (Version 2)
Quarter: 2015Q3

REPORT INFORMATION
  Report Type: Spontaneous
  Country: AU (occurrence: AU)
  Receive Date: 20150716
  Receipt Date: 20150728
  Transmission Date: 20151125
  Serious: Yes (Other)
  Sender: FDA-Public Use
  Company Number: AU-009507513-1507AUS006387

PATIENT
  Age: 46 Year
  Sex: Female
  Weight: 73 kg

DRUGS (1)
  1. MIRTAZAPINE. [Suspect]
     Active Substance: MIRTAZAPINE
     Dosage: 30 DOSE UNSPECIFIED
     Route: 048
     Dates: end: 20140815

REACTIONS (4)
  - Oral mucosal exfoliation [Recovered/Resolved]
  - Dry mouth [Recovered/Resolved]
  - Oral pain [Recovered/Resolved]
  - Mouth haemorrhage [Recovered/Resolved]

NARRATIVE: CASE EVENT DATE: 20140415
